FAERS Safety Report 23816158 (Version 2)
Quarter: 2024Q2

REPORT INFORMATION
  Report Type: Spontaneous
  Country: US (occurrence: US)
  Receive Date: 20240503
  Receipt Date: 20240515
  Transmission Date: 20240715
  Serious: Yes (Hospitalization)
  Sender: FDA-Public Use
  Company Number: US-KARYOPHARM-2024KPT000970

PATIENT

DRUGS (11)
  1. XPOVIO [Suspect]
     Active Substance: SELINEXOR
     Indication: Plasma cell myeloma
     Dosage: 80 MG, WEEKLY FOR 3 WEEKS THEN 1 WEEK OFF
     Route: 048
     Dates: start: 20240425, end: 2024
  2. RAMIPRIL [Concomitant]
     Active Substance: RAMIPRIL
  3. VALACYCLOVIR [Concomitant]
     Active Substance: VALACYCLOVIR HYDROCHLORIDE
  4. PROVENTIL [Concomitant]
     Active Substance: ALBUTEROL
  5. POMALYST [Concomitant]
     Active Substance: POMALIDOMIDE
     Dosage: 4 MG, QD FOR 21 DAYS THEN 7 DAYS OFF
     Route: 048
  6. METOPROLOL SUCCINATE [Concomitant]
     Active Substance: METOPROLOL SUCCINATE
  7. ELIQUIS [Concomitant]
     Active Substance: APIXABAN
  8. DEXAMETHASONE [Concomitant]
     Active Substance: DEXAMETHASONE
  9. BENZONATATE [Concomitant]
     Active Substance: BENZONATATE
  10. ADVAIR HFA [Concomitant]
     Active Substance: FLUTICASONE PROPIONATE\SALMETEROL XINAFOATE
  11. ZOFRAN [Concomitant]
     Active Substance: ONDANSETRON HYDROCHLORIDE

REACTIONS (2)
  - Peripheral swelling [Not Recovered/Not Resolved]
  - Pyrexia [Not Recovered/Not Resolved]

NARRATIVE: CASE EVENT DATE: 20240428
